FAERS Safety Report 24371241 (Version 1)
Quarter: 2024Q3

REPORT INFORMATION
  Report Type: Spontaneous
  Country: US (occurrence: US)
  Receive Date: 20240927
  Receipt Date: 20240927
  Transmission Date: 20241017
  Serious: No
  Sender: LAVIPHARM
  Company Number: US-Lavipharm SA-2162139

PATIENT

DRUGS (1)
  1. CLONIDINE [Suspect]
     Active Substance: CLONIDINE

REACTIONS (2)
  - Product adhesion issue [Unknown]
  - Product administered at inappropriate site [Unknown]
